FAERS Safety Report 9249381 (Version 1)
Quarter: 2013Q2

REPORT INFORMATION
  Report Type: Spontaneous
  Country: US (occurrence: US)
  Receive Date: 20130423
  Receipt Date: 20130423
  Transmission Date: 20140414
  Serious: No
  Sender: FDA-Public Use
  Company Number: US-BAYER-2013-051213

PATIENT
  Age: 57 Year
  Sex: Female
  Weight: 101.59 kg

DRUGS (8)
  1. ALEVE CAPLET [Suspect]
     Indication: ARTHRITIS
     Dosage: 1 DF, QD
     Route: 048
     Dates: end: 20130418
  2. PRILOSEC [Concomitant]
  3. XYZAL [Concomitant]
  4. DILTIAZEM HCL [Concomitant]
  5. ATENOLOL [Concomitant]
  6. LEVOTHYROXINE [Concomitant]
  7. MECLIZINE [Concomitant]
  8. HYDROCHLOROTHIAZID [Concomitant]

REACTIONS (1)
  - Blood pressure increased [Not Recovered/Not Resolved]
